FAERS Safety Report 4916615-8 (Version None)
Quarter: 2006Q1

REPORT INFORMATION
  Report Type: 
  Country: None (occurrence: None)
  Receive Date: 20060220
  Receipt Date: 20060209
  Transmission Date: 20060701
  Serious: Yes (Other)
  Sender: FDA-Public Use
  Company Number: JP-JPN-A200600567

PATIENT
  Age: 59 Year
  Sex: Male

DRUGS (6)
  1. VALTREX [Suspect]
     Indication: HERPES ZOSTER
     Dosage: 1000MG PER DAY
     Route: 048
     Dates: start: 20060203, end: 20060206
  2. MICARDIS [Concomitant]
     Dosage: 120MG PER DAY
     Route: 048
  3. UNKNOWN DRUG [Concomitant]
     Dosage: 4TAB THREE TIMES PER DAY
     Route: 048
  4. NORVASC [Concomitant]
     Dosage: 5MG PER DAY
     Route: 048
  5. ALFAROL [Concomitant]
     Dosage: 1MCG PER DAY
     Route: 048
  6. DEPAS [Concomitant]
     Dosage: 1TAB THREE TIMES PER DAY
     Route: 048

REACTIONS (3)
  - DELIRIUM [None]
  - DYSARTHRIA [None]
  - HALLUCINATION [None]
